FAERS Safety Report 7533000-3 (Version None)
Quarter: 2011Q2

REPORT INFORMATION
  Report Type: 
  Country: None (occurrence: None)
  Receive Date: 20110607
  Receipt Date: 20110607
  Transmission Date: 20111010
  Serious: No
  Sender: FDA-Public Use
  Company Number: None

PATIENT
  Age: 57 Year
  Sex: Male
  Weight: 81.6475 kg

DRUGS (2)
  1. CRESTOR [Suspect]
     Indication: LOW DENSITY LIPOPROTEIN INCREASED
     Dosage: 10MG DAILY PO
     Route: 048
     Dates: start: 20060105, end: 20110604
  2. CRESTOR [Suspect]
     Indication: BLOOD CHOLESTEROL INCREASED
     Dosage: 10MG DAILY PO
     Route: 048
     Dates: start: 20060105, end: 20110604

REACTIONS (7)
  - PERFORMANCE STATUS DECREASED [None]
  - MYALGIA [None]
  - AFFECTIVE DISORDER [None]
  - ARTHRALGIA [None]
  - ANGER [None]
  - ILL-DEFINED DISORDER [None]
  - IRRITABILITY [None]
